FAERS Safety Report 8837122 (Version 2)
Quarter: 2012Q4

REPORT INFORMATION
  Report Type: 
  Country: DE (occurrence: DE)
  Receive Date: 20121011
  Receipt Date: 20121127
  Transmission Date: 20130627
  Serious: Yes (Other)
  Sender: FDA-Public Use
  Company Number: DE-ROCHE-1143510

PATIENT
  Sex: Female

DRUGS (9)
  1. HERCEPTIN [Suspect]
     Indication: GASTRIC CANCER
     Route: 065
  2. XELODA [Suspect]
     Indication: METASTATIC NEOPLASM
     Route: 065
     Dates: start: 201103, end: 201201
  3. BISOPROLOL [Concomitant]
     Indication: HYPERTENSION
     Route: 065
  4. EXFORGE [Concomitant]
     Indication: HYPERTENSION
     Route: 048
  5. AMINEURIN [Concomitant]
     Indication: DEPRESSED MOOD
     Route: 048
  6. PANTOZOL [Concomitant]
     Indication: PROPHYLAXIS AGAINST GASTROINTESTINAL ULCER
     Route: 048
  7. ANASTROZOL [Concomitant]
     Route: 048
     Dates: start: 20120816, end: 20120926
  8. TAMOXIFEN [Concomitant]
     Indication: BREAST CANCER METASTATIC
     Route: 065
     Dates: start: 201202, end: 201208
  9. CORTISONE [Concomitant]
     Dosage: for 5 days
     Route: 042

REACTIONS (7)
  - Myelopathy [Not Recovered/Not Resolved]
  - Monoparesis [Unknown]
  - Micturition disorder [Unknown]
  - Gastrointestinal motility disorder [Unknown]
  - Metastases to liver [Unknown]
  - Metastases to lymph nodes [Unknown]
  - Paraplegia [Unknown]
